FAERS Safety Report 7382768-8 (Version None)
Quarter: 2011Q1

REPORT INFORMATION
  Report Type: 
  Country: None (occurrence: None)
  Receive Date: 20110330
  Receipt Date: 20110322
  Transmission Date: 20110831
  Serious: No
  Sender: FDA-Public Use
  Company Number: US-BIOGENIDEC-2011BI010991

PATIENT
  Sex: Female

DRUGS (1)
  1. TYSABRI [Suspect]
     Indication: MULTIPLE SCLEROSIS
     Route: 042
     Dates: start: 20071208

REACTIONS (6)
  - WEIGHT INCREASED [None]
  - FALL [None]
  - MALAISE [None]
  - CHEST PAIN [None]
  - MOTOR DYSFUNCTION [None]
  - BACK PAIN [None]
